FAERS Safety Report 9289461 (Version 1)
Quarter: 2013Q2

REPORT INFORMATION
  Report Type: Spontaneous
  Country: JP (occurrence: JP)
  Receive Date: 20130514
  Receipt Date: 20130514
  Transmission Date: 20140414
  Serious: Yes (Hospitalization)
  Sender: FDA-Public Use
  Company Number: JP-009507513-1305JPN005469

PATIENT
  Age: 81 Year
  Sex: Male

DRUGS (8)
  1. GLACTIV [Suspect]
     Indication: TYPE 2 DIABETES MELLITUS
     Route: 048
  2. CLOPIDOGREL [Concomitant]
     Dosage: UNK
     Route: 048
  3. ASPIRIN [Concomitant]
     Dosage: UNK
     Route: 048
  4. CARVEDILOL [Concomitant]
     Dosage: UNK
     Route: 048
  5. NICORANDIL [Concomitant]
     Dosage: UNK
     Route: 048
  6. TEPRENONE [Concomitant]
     Dosage: UNK
     Route: 048
  7. DONEPEZIL HYDROCHLORIDE [Concomitant]
     Dosage: UNK
     Route: 048
  8. ETIZOLAM [Concomitant]
     Dosage: UNK
     Route: 048

REACTIONS (1)
  - Insulin autoimmune syndrome [Unknown]
